FAERS Safety Report 4303720-2 (Version None)
Quarter: 2004Q1

REPORT INFORMATION
  Report Type: 
  Country: None (occurrence: None)
  Receive Date: 20040224
  Receipt Date: 20040224
  Transmission Date: 20041129
  Serious: Yes (Hospitalization)
  Sender: FDA-Public Use
  Company Number: None

PATIENT
  Age: 89 Year
  Sex: Male

DRUGS (1)
  1. RABEPRAZOLE 20 MG EISAI [Suspect]
     Indication: GASTROOESOPHAGEAL REFLUX DISEASE
     Dosage: 20 MG QD ORAL
     Route: 048
     Dates: start: 20031214, end: 20031214

REACTIONS (1)
  - THROMBOCYTOPENIA [None]
